FAERS Safety Report 8111261-X (Version None)
Quarter: 2012Q1

REPORT INFORMATION
  Report Type: 
  Country: None (occurrence: None)
  Receive Date: 20120202
  Receipt Date: 20120202
  Transmission Date: 20120608
  Serious: Yes (Hospitalization)
  Sender: FDA-Public Use
  Company Number: None

PATIENT
  Age: 87 Year
  Sex: Male
  Weight: 79.3795 kg

DRUGS (1)
  1. ALFUZOSIN HCL [Suspect]
     Indication: PROSTATOMEGALY
     Dosage: QD HS HS ORAL
     Route: 048
     Dates: start: 20120103

REACTIONS (2)
  - DIZZINESS [None]
  - BLOOD PRESSURE DECREASED [None]
